FAERS Safety Report 24594334 (Version 2)
Quarter: 2025Q3

REPORT INFORMATION
  Report Type: Report from Study
  Country: US (occurrence: US)
  Receive Date: 20241108
  Receipt Date: 20250809
  Transmission Date: 20251021
  Serious: Yes (Other)
  Sender: ALEXION PHARMACEUTICALS
  Company Number: US-AstraZeneca-CH-00739333A

PATIENT
  Age: 77 Year
  Sex: Female
  Weight: 88.889 kg

DRUGS (1)
  1. OSIMERTINIB [Suspect]
     Active Substance: OSIMERTINIB
     Indication: Non-small cell lung cancer
     Dosage: 80 MILLIGRAM, QD
     Dates: start: 201810

REACTIONS (2)
  - Emergency care [Unknown]
  - Dementia [Unknown]

NARRATIVE: CASE EVENT DATE: 20240801
